FAERS Safety Report 23833023 (Version 2)
Quarter: 2024Q2

REPORT INFORMATION
  Report Type: Spontaneous
  Country: US (occurrence: US)
  Receive Date: 20240508
  Receipt Date: 20240624
  Transmission Date: 20240716
  Serious: Yes (Hospitalization)
  Sender: FDA-Public Use
  Company Number: US-BAYER-2024A067260

PATIENT
  Age: 45 Year
  Sex: Female
  Weight: 80.2 kg

DRUGS (2)
  1. GADOBUTROL [Suspect]
     Active Substance: GADOBUTROL
     Indication: Magnetic resonance imaging head
     Dosage: 8.2 MMOLE
     Route: 040
     Dates: start: 20240424, end: 20240424
  2. BENADRYL [Suspect]
     Active Substance: DIPHENHYDRAMINE HYDROCHLORIDE
     Dosage: 25 MG
     Route: 042

REACTIONS (9)
  - Throat tightness [None]
  - Hypoaesthesia [None]
  - Wheezing [None]
  - Chest discomfort [None]
  - Paraesthesia [None]
  - Dyspnoea [None]
  - Erythema [None]
  - Lip swelling [None]
  - Pruritus [None]

NARRATIVE: CASE EVENT DATE: 20240424
